FAERS Safety Report 6962411-X (Version None)
Quarter: 2010Q3

REPORT INFORMATION
  Report Type: 
  Country: None (occurrence: None)
  Receive Date: 20100902
  Receipt Date: 20100823
  Transmission Date: 20110219
  Serious: Yes (Other)
  Sender: FDA-Public Use
  Company Number: US-JNJFOC-20100505296

PATIENT
  Sex: Male
  Weight: 32 kg

DRUGS (2)
  1. CHILDREN'S MOTRIN [Suspect]
     Indication: RHINORRHOEA
     Route: 048
  2. CHILDREN'S MOTRIN [Suspect]
     Indication: NASOPHARYNGITIS
     Route: 048

REACTIONS (4)
  - HALLUCINATION, VISUAL [None]
  - MENTAL STATUS CHANGES [None]
  - PRODUCT QUALITY ISSUE [None]
  - SENSORY DISTURBANCE [None]
